FAERS Safety Report 9476677 (Version 2)
Quarter: 2014Q3

REPORT INFORMATION
  Report Type: Spontaneous
  Country: US (occurrence: US)
  Receive Date: 20130826
  Receipt Date: 20140826
  Transmission Date: 20150326
  Serious: No
  Sender: FDA-Public Use
  Company Number: US-BRISTOL-MYERS SQUIBB COMPANY-19040872

PATIENT
  Age: 35 Year
  Sex: Female
  Weight: 108.84 kg

DRUGS (7)
  1. CLARITIN [Concomitant]
     Active Substance: LORATADINE
     Route: 048
     Dates: start: 20110228
  2. BACTRIM DS [Concomitant]
     Active Substance: SULFAMETHOXAZOLE\TRIMETHOPRIM
     Route: 048
     Dates: start: 20120316
  3. KENALOG [Suspect]
     Active Substance: TRIAMCINOLONE ACETONIDE
     Indication: URINARY TRACT INFECTION
     Route: 030
     Dates: start: 20120322
  4. ORTHO TRI CYCLEN [Concomitant]
     Active Substance: ETHINYL ESTRADIOL\NORGESTIMATE
     Route: 048
     Dates: start: 20110622
  5. INSULIN [Concomitant]
     Active Substance: INSULIN NOS
     Dates: start: 20110502
  6. KENALOG [Suspect]
     Active Substance: TRIAMCINOLONE ACETONIDE
     Indication: RHINITIS ALLERGIC
     Route: 030
     Dates: start: 20120322
  7. EPIPEN [Concomitant]
     Active Substance: EPINEPHRINE
     Dates: start: 20110502

REACTIONS (1)
  - Injection site atrophy [Unknown]
